FAERS Safety Report 15022481 (Version 1)
Quarter: 2018Q2

REPORT INFORMATION
  Report Type: Spontaneous
  Country: US (occurrence: US)
  Receive Date: 20180618
  Receipt Date: 20180618
  Transmission Date: 20180711
  Serious: No
  Sender: FDA-Public Use
  Company Number: US-MYLANLABS-2018M1029989

PATIENT
  Sex: Female
  Weight: 50 kg

DRUGS (3)
  1. DIOVAN [Concomitant]
     Active Substance: VALSARTAN
     Indication: PRODUCT USED FOR UNKNOWN INDICATION
     Dosage: UNK
  2. VERAPAMIL [Suspect]
     Active Substance: VERAPAMIL HYDROCHLORIDE
     Indication: HYPERTENSION
     Dosage: UNK
     Route: 048
  3. PROPRANOLOL [Concomitant]
     Active Substance: PROPRANOLOL HYDROCHLORIDE
     Indication: PRODUCT USED FOR UNKNOWN INDICATION
     Dosage: UNK

REACTIONS (1)
  - Heart rate decreased [Not Recovered/Not Resolved]
